FAERS Safety Report 23458375 (Version 1)
Quarter: 2024Q1

REPORT INFORMATION
  Report Type: Report from Study
  Country: IT (occurrence: IT)
  Receive Date: 20240130
  Receipt Date: 20240130
  Transmission Date: 20240410
  Serious: Yes (Hospitalization)
  Sender: FDA-Public Use
  Company Number: None

PATIENT
  Age: 47 Year
  Sex: Male

DRUGS (1)
  1. TRAMADOL [Suspect]
     Active Substance: TRAMADOL\TRAMADOL HYDROCHLORIDE
     Indication: Product used for unknown indication
     Dosage: 1 DOSAGE FORM,(FREQUENCY: TOTAL ROUTE: ORAL)
     Route: 048
     Dates: start: 20221013, end: 20221013

REACTIONS (2)
  - Syncope [Recovering/Resolving]
  - Psychogenic visual disorder [Recovering/Resolving]

NARRATIVE: CASE EVENT DATE: 20221013
